FAERS Safety Report 26101043 (Version 1)
Quarter: 2025Q4

REPORT INFORMATION
  Report Type: Spontaneous
  Country: EU (occurrence: EU)
  Receive Date: 20251128
  Receipt Date: 20251128
  Transmission Date: 20260118
  Serious: Yes (Hospitalization, Other)
  Sender: BRISTOL-MYERS SQUIBB COMPANY
  Company Number: None

PATIENT
  Age: 89 Year
  Sex: Female

DRUGS (17)
  1. ELIQUIS [Suspect]
     Active Substance: APIXABAN
     Indication: Atrial fibrillation
     Dosage: 2,5 MG X 2
     Route: 048
     Dates: start: 202103
  2. Atenblock [Concomitant]
     Indication: Product used for unknown indication
  3. HYDROCHLOROTHIAZIDE\VALSARTAN [Concomitant]
     Active Substance: HYDROCHLOROTHIAZIDE\VALSARTAN
     Indication: Product used for unknown indication
  4. DOXEPIN [Concomitant]
     Active Substance: DOXEPIN
     Indication: Product used for unknown indication
     Dosage: 3 MG X 1
  5. CALCIUM CARBONATE\CHOLECALCIFEROL [Concomitant]
     Active Substance: CALCIUM CARBONATE\CHOLECALCIFEROL
     Indication: Product used for unknown indication
  6. PANADOL [Concomitant]
     Active Substance: ACETAMINOPHEN
     Indication: Product used for unknown indication
     Dosage: 500 MG X 3 + ADDITIONAL 500 MG X 1-3 AS NEEDED / 500 MG THREE TIMES DAILY, PLUS AN ADDITIONAL 500 MG 1-3 TIMES AS NEEDED. [BILINGUAL SOURCE]
  7. SIMVASTATIN [Concomitant]
     Active Substance: SIMVASTATIN
     Indication: Product used for unknown indication
     Dosage: 10 MG X 1
  8. SINEMET [Concomitant]
     Active Substance: CARBIDOPA\LEVODOPA
     Indication: Product used for unknown indication
     Dosage: 2 TBL X 3
  9. PANTOPRAZOLE SODIUM [Concomitant]
     Active Substance: PANTOPRAZOLE SODIUM
     Indication: Product used for unknown indication
  10. LEVOTHYROXINE [Concomitant]
     Active Substance: LEVOTHYROXINE
     Indication: Product used for unknown indication
     Dosage: 1/2 TABLET ON 2 DAYS A WEEK, 1 TABLET ON 5 DAYS A WEEK - ? TABLET ON 2 DAYS PER WEEK, 1 TABLET ON 5 DAYS PER WEEK. [BILINGUAL SOURCE]
  11. Cohemin Depot [Concomitant]
     Indication: Product used for unknown indication
     Dosage: EVERY 3 MONTHS / EVERY 3 MONTHS [BILINGUAL SOURCE]
  12. PROLIA [Concomitant]
     Active Substance: DENOSUMAB
     Indication: Product used for unknown indication
     Dosage: EVERY 6 MONTHS/ EVERY 6 MONTHS
  13. TRAMADOL [Concomitant]
     Active Substance: TRAMADOL
     Indication: Product used for unknown indication
     Dosage: 50 MG AS NEEDED, MAXIMUM 100 MG PER DAY
     Route: 048
  14. PREDNISOLONE [Concomitant]
     Active Substance: PREDNISOLONE
     Indication: Product used for unknown indication
     Dosage: A WEEK^S COURSE OF 2.5 - 5 MG X 1 AS NEEDED / IF NECESSARY, A ONE-WEEK COURSE OF 2.5-5 MG ONCE DAILY
  15. Nitrosid [Concomitant]
     Indication: Product used for unknown indication
     Dosage: 2,5 MG AS NEEDED
  16. OXAZEPAM [Concomitant]
     Active Substance: OXAZEPAM
     Indication: Product used for unknown indication
     Dosage: 3.75 MG X 1 AS NEEDED / 3,75 MG X 1 AS NEEDED
  17. IMOVANE [Concomitant]
     Active Substance: ZOPICLONE
     Indication: Product used for unknown indication
     Dosage: 7.5 MG X 1 AS NEEDED / 7,5 MG X1 AS NEEDED

REACTIONS (6)
  - Spontaneous haematoma [Recovering/Resolving]
  - Haemorrhage [Recovering/Resolving]
  - Skin necrosis [Recovering/Resolving]
  - Haemoglobin decreased [Recovering/Resolving]
  - Pain in extremity [Recovering/Resolving]
  - Blister [Recovering/Resolving]

NARRATIVE: CASE EVENT DATE: 20251121
